FAERS Safety Report 5115524-1 (Version None)
Quarter: 2006Q3

REPORT INFORMATION
  Report Type: 
  Country: None (occurrence: None)
  Receive Date: 20060927
  Receipt Date: 20060921
  Transmission Date: 20061208
  Serious: Yes (Other)
  Sender: FDA-Public Use
  Company Number: 2006UW18502

PATIENT
  Age: 77 Year
  Sex: Female
  Weight: 97.5 kg

DRUGS (5)
  1. ARIMIDEX [Suspect]
     Indication: BREAST CANCER FEMALE
     Route: 048
  2. ALPHAGAN [Concomitant]
  3. LUMIGAN [Concomitant]
  4. AVAPRO [Concomitant]
  5. HYDRALAZINE [Concomitant]

REACTIONS (1)
  - GLAUCOMA [None]
